FAERS Safety Report 8058964-3 (Version None)
Quarter: 2012Q1

REPORT INFORMATION
  Report Type: 
  Country: None (occurrence: None)
  Receive Date: 20120120
  Receipt Date: 20120113
  Transmission Date: 20120608
  Serious: No
  Sender: FDA-Public Use
  Company Number: US-B.I. PHARMACEUTICALS,INC./RIDGEFIELD-2012-BP-00824BP

PATIENT
  Age: 57 Year
  Sex: Female

DRUGS (2)
  1. TRADJENTA [Suspect]
     Dates: start: 20111229, end: 20111229
  2. LOVAZA [Concomitant]

REACTIONS (1)
  - URTICARIA [None]
